FAERS Safety Report 9735441 (Version 1)
Quarter: 2013Q4

REPORT INFORMATION
  Report Type: Spontaneous
  Country: US (occurrence: US)
  Receive Date: 20131206
  Receipt Date: 20131206
  Transmission Date: 20140711
  Serious: No
  Sender: FDA-Public Use
  Company Number: US-GILEAD-2009-0022844

PATIENT
  Sex: Female

DRUGS (6)
  1. LETAIRIS [Suspect]
     Indication: PULMONARY ARTERIAL HYPERTENSION
     Route: 048
     Dates: start: 20090413
  2. LASIX [Concomitant]
  3. INDERAL [Concomitant]
  4. SPIRONOLACTONE [Concomitant]
  5. URSO [Concomitant]
  6. ACIPHEX [Concomitant]

REACTIONS (2)
  - Oedema peripheral [Unknown]
  - Dyspnoea [Unknown]
